FAERS Safety Report 6866699-5 (Version None)
Quarter: 2010Q2

REPORT INFORMATION
  Report Type: 
  Country: None (occurrence: None)
  Receive Date: 20100601
  Receipt Date: 20100208
  Transmission Date: 20101027
  Serious: Yes (Other)
  Sender: FDA-Public Use
  Company Number: US201002002852

PATIENT
  Sex: Male

DRUGS (2)
  1. BYETTA [Suspect]
     Dates: end: 20091101
  2. EXENATIDE UNK STRENGTH PEN, DISPOSABLE DEVICE (EXENATIDE PEN (UNKNOWN [Concomitant]

REACTIONS (1)
  - RENAL DISORDER [None]
